FAERS Safety Report 8114812-4 (Version None)
Quarter: 2012Q1

REPORT INFORMATION
  Report Type: 
  Country: None (occurrence: None)
  Receive Date: 20120206
  Receipt Date: 20120131
  Transmission Date: 20120608
  Serious: Yes (Death, Other)
  Sender: FDA-Public Use
  Company Number: US-CELGENEUS-163-CCAZA-12020079

PATIENT

DRUGS (2)
  1. AZACITIDINE [Suspect]
  2. AZACITIDINE [Suspect]
     Dosage: 75 MILLIGRAM/SQ. METER
     Route: 065

REACTIONS (4)
  - GRAFT VERSUS HOST DISEASE [None]
  - INFECTION [None]
  - DISEASE PROGRESSION [None]
  - CEREBRAL HAEMORRHAGE [None]
